FAERS Safety Report 25703650 (Version 2)
Quarter: 2025Q4

REPORT INFORMATION
  Report Type: Other
  Country: US (occurrence: US)
  Receive Date: 20250820
  Receipt Date: 20251121
  Transmission Date: 20260118
  Serious: Yes (Hospitalization)
  Sender: VERASTEM
  Company Number: US-VERASTEM-250731US-AFCPK-00366

PATIENT

DRUGS (13)
  1. AVMAPKI FAKZYNJA CO-PACK [Suspect]
     Active Substance: AVUTOMETINIB POTASSIUM\DEFACTINIB HYDROCHLORIDE
     Indication: Ovarian cancer
     Dosage: AS DIRECTED PER DOSING CARD
     Route: 048
     Dates: start: 20250723
  2. AVMAPKI FAKZYNJA CO-PACK [Suspect]
     Active Substance: AVUTOMETINIB POTASSIUM\DEFACTINIB HYDROCHLORIDE
     Dosage: AVMAPKI 2.4 MG DAY 1 OF 4 FOR 3 WEEKS, FAKZYNJA 200 MG DAILY FOR 3 WEEKS
     Route: 048
  3. AVMAPKI FAKZYNJA CO-PACK [Suspect]
     Active Substance: AVUTOMETINIB POTASSIUM\DEFACTINIB HYDROCHLORIDE
     Dosage: AVMAPKI 2.4 MG DAY 1 OF 4 FOR 3 WEEKS, FAKZYNJA 200 MG TWICE DAILY FOR 3 WEEKS
  4. VITAMIN D3 [Concomitant]
     Active Substance: CHOLECALCIFEROL
     Indication: Product used for unknown indication
     Dosage: 2000 INTERNATIONAL UNIT, QD
     Route: 048
  5. FERROUS SULFATE [Concomitant]
     Active Substance: FERROUS SULFATE
     Indication: Product used for unknown indication
     Dosage: 325 MILLIGRAM, QD
     Route: 048
  6. HEPARIN [Concomitant]
     Active Substance: HEPARIN SODIUM
     Indication: Product used for unknown indication
     Dosage: 5000 INTERNATIONAL UNIT, QD
     Route: 058
  7. SYNTHROID [Concomitant]
     Active Substance: LEVOTHYROXINE SODIUM
     Indication: Product used for unknown indication
     Dosage: 125 MICROGRAM, QAM
     Route: 048
  8. PROTONIX [Concomitant]
     Active Substance: PANTOPRAZOLE SODIUM
     Indication: Product used for unknown indication
     Dosage: 20 MILLIGRAM, BID
     Route: 048
  9. TYLENOL [Concomitant]
     Active Substance: ACETAMINOPHEN
     Indication: Product used for unknown indication
     Dosage: 650 MILLIGRAM, Q6H, PRN
     Route: 048
  10. DILAUDID [Concomitant]
     Active Substance: HYDROMORPHONE HYDROCHLORIDE
     Indication: Product used for unknown indication
     Dosage: 0.5 MILLIGRAM, PRN, Q3H
     Route: 042
  11. NARCAN [Concomitant]
     Active Substance: NALOXONE HYDROCHLORIDE
     Indication: Product used for unknown indication
     Dosage: 0.1 MILLIGRAM, PRN, Q2 MINUTE
     Route: 042
  12. ZOFRAN [Concomitant]
     Active Substance: ONDANSETRON HYDROCHLORIDE
     Indication: Prophylaxis of nausea and vomiting
     Dosage: 4 MILLIGRAM, PRN, Q6H
     Route: 042
  13. NORMODYNE [Concomitant]
     Active Substance: LABETALOL HYDROCHLORIDE
     Indication: Hypertension
     Dosage: 100 MILLIGRAM
     Route: 048

REACTIONS (12)
  - Large intestine infection [Unknown]
  - Mucosal inflammation [Unknown]
  - Acne [Unknown]
  - Rash [Unknown]
  - Rash [Unknown]
  - Fatigue [Unknown]
  - Abdominal pain [Recovered/Resolved]
  - Constipation [Unknown]
  - Diarrhoea [Unknown]
  - Pruritus [Recovering/Resolving]
  - Infection [Unknown]
  - Chills [Unknown]

NARRATIVE: CASE EVENT DATE: 20250101
